FAERS Safety Report 10882209 (Version 1)
Quarter: 2015Q1

REPORT INFORMATION
  Report Type: Spontaneous
  Country: US (occurrence: None)
  Receive Date: 20150226
  Receipt Date: 20150226
  Transmission Date: 20150721
  Serious: Yes (Other)
  Sender: FDA-Public Use
  Company Number: ADR_2015-00387

PATIENT
  Age: 54 Year
  Sex: Male

DRUGS (2)
  1. BACLOFEN INTRATHECAL [Suspect]
     Active Substance: BACLOFEN
  2. BUPIVACAINE [Suspect]
     Active Substance: BUPIVACAINE

REACTIONS (2)
  - Granuloma [None]
  - Hypoaesthesia [None]
